FAERS Safety Report 14708908 (Version 2)
Quarter: 2018Q2

REPORT INFORMATION
  Report Type: Report from Study
  Country: ES (occurrence: ES)
  Receive Date: 20180403
  Receipt Date: 20180626
  Transmission Date: 20180711
  Serious: Yes (Hospitalization)
  Sender: FDA-Public Use
  Company Number: ES-SA-2018SA087232

PATIENT
  Age: 72 Year
  Sex: Male
  Weight: 69 kg

DRUGS (8)
  1. AFLIBERCEPT [Suspect]
     Active Substance: AFLIBERCEPT
     Indication: COLORECTAL CANCER
     Dosage: 138 MG,UNK
     Route: 042
     Dates: start: 20180305, end: 20180305
  2. FOLINIC ACID [Suspect]
     Active Substance: LEUCOVORIN
     Dosage: 725.6 MG, QOW
     Route: 042
     Dates: start: 20171106, end: 20171106
  3. FLUOROURACIL. [Suspect]
     Active Substance: FLUOROURACIL
     Indication: COLORECTAL CANCER METASTATIC
     Dosage: 4353.6 MG, QOW
     Route: 042
     Dates: start: 20171106, end: 20171106
  4. FOLINIC ACID [Suspect]
     Active Substance: LEUCOVORIN
     Indication: COLORECTAL CANCER METASTATIC
     Dosage: 725.6 UNK
     Route: 042
     Dates: start: 20180305, end: 20180305
  5. FLUOROURACIL. [Suspect]
     Active Substance: FLUOROURACIL
     Dosage: 4353.6 UNK
     Route: 042
     Dates: start: 20180305, end: 20180305
  6. AFLIBERCEPT [Suspect]
     Active Substance: AFLIBERCEPT
     Dosage: 138 MG,UNK
     Route: 042
     Dates: start: 20171106, end: 20171106
  7. IRINOTECAN [Suspect]
     Active Substance: IRINOTECAN
     Indication: COLORECTAL CANCER METASTATIC
     Dosage: 272.1 UNK
     Route: 042
     Dates: start: 20180305, end: 20180305
  8. IRINOTECAN [Suspect]
     Active Substance: IRINOTECAN
     Dosage: 272.1 MG, QOW
     Route: 042
     Dates: start: 20171106, end: 20171106

REACTIONS (1)
  - Colitis [Recovered/Resolved]

NARRATIVE: CASE EVENT DATE: 20180316
